FAERS Safety Report 19795104 (Version 1)
Quarter: 2021Q3

REPORT INFORMATION
  Report Type: Spontaneous
  Country: US (occurrence: US)
  Receive Date: 20210903
  Receipt Date: 20210903
  Transmission Date: 20211014
  Serious: Yes (Hospitalization)
  Sender: FDA-Public Use
  Company Number: None

PATIENT
  Age: 36 Year
  Sex: Male
  Weight: 116.1 kg

DRUGS (8)
  1. NOREPINEPHRINE. [Concomitant]
     Active Substance: NOREPINEPHRINE
     Dates: start: 20210901
  2. CISATRICURIUM [Concomitant]
     Dates: start: 20210902
  3. AZITHROMYCIN ANHYDROUS. [Concomitant]
     Active Substance: AZITHROMYCIN ANHYDROUS
     Dates: start: 20210901
  4. REMDESIVIR. [Concomitant]
     Active Substance: REMDESIVIR
     Dates: start: 20210901, end: 20210903
  5. ROCEPHIN [Concomitant]
     Active Substance: CEFTRIAXONE SODIUM
     Dates: start: 20210901
  6. FENTANYL. [Concomitant]
     Active Substance: FENTANYL
     Dates: start: 20210901
  7. DEXAMETHASONE 6MG [Concomitant]
     Dates: start: 20210901
  8. BARICITINIB USE FOR COVID?19 UNDER EMERGENCY USE AUTHORIZATION (EUA): [Suspect]
     Active Substance: BARICITINIB
     Indication: COVID-19
     Route: 048
     Dates: start: 20210831, end: 20210902

REACTIONS (2)
  - Blood creatinine increased [None]
  - Liver function test increased [None]

NARRATIVE: CASE EVENT DATE: 20210901
